FAERS Safety Report 19269068 (Version 2)
Quarter: 2021Q2

REPORT INFORMATION
  Report Type: Spontaneous
  Country: AR (occurrence: AR)
  Receive Date: 20210517
  Receipt Date: 20210520
  Transmission Date: 20210717
  Serious: Yes (Death, Life-Threatening, Hospitalization)
  Sender: FDA-Public Use
  Company Number: AR-PFIZER INC-2021498176

PATIENT
  Age: 83 Year
  Sex: Male

DRUGS (1)
  1. SUTENT [Suspect]
     Active Substance: SUNITINIB MALATE
     Indication: METASTATIC RENAL CELL CARCINOMA
     Dosage: 37.5 MG, CYCLIC (DAILY, 2X1 SCHEME)
     Dates: start: 20170725

REACTIONS (6)
  - Product prescribing error [Unknown]
  - Myocardial ischaemia [Unknown]
  - Cardio-respiratory arrest [Fatal]
  - Somnolence [Unknown]
  - Insomnia [Unknown]
  - Pneumonia [Unknown]

NARRATIVE: CASE EVENT DATE: 202105
